FAERS Safety Report 10249235 (Version 1)
Quarter: 2014Q2

REPORT INFORMATION
  Report Type: Spontaneous
  Country: US (occurrence: US)
  Receive Date: 20140620
  Receipt Date: 20140620
  Transmission Date: 20141212
  Serious: No
  Sender: FDA-Public Use
  Company Number: US-009507513-1405USA006426

PATIENT
  Age: 4 Year
  Sex: Male

DRUGS (4)
  1. CLARITIN ORAL SOLUTION [Suspect]
     Indication: HYPERSENSITIVITY
     Dosage: UNK, UNKNOWN
     Route: 048
  2. CLARITIN ORAL SOLUTION [Suspect]
     Indication: SNEEZING
  3. CLARITIN ORAL SOLUTION [Suspect]
     Indication: NASAL DISCOMFORT
  4. CLARITIN ORAL SOLUTION [Suspect]
     Indication: COUGH

REACTIONS (1)
  - Rash [Unknown]
